FAERS Safety Report 25806196 (Version 1)
Quarter: 2025Q3

REPORT INFORMATION
  Report Type: Report from Study
  Country: US (occurrence: US)
  Receive Date: 20250916
  Receipt Date: 20250916
  Transmission Date: 20251020
  Serious: Yes (Other)
  Sender: ABBVIE
  Company Number: US-ABBVIE-6458249

PATIENT
  Age: 72 Year
  Sex: Female

DRUGS (1)
  1. CREON [Suspect]
     Active Substance: PANCRELIPASE AMYLASE\PANCRELIPASE LIPASE\PANCRELIPASE PROTEASE
     Indication: Product used for unknown indication
     Route: 048
     Dates: start: 20250819, end: 20250911

REACTIONS (5)
  - Non-Hodgkin^s lymphoma [Unknown]
  - Splenomegaly [Unknown]
  - Gastrointestinal disorder [Unknown]
  - Pancreatitis [Unknown]
  - Soft tissue mass [Unknown]

NARRATIVE: CASE EVENT DATE: 20250901
